FAERS Safety Report 4877610-0 (Version None)
Quarter: 2006Q1

REPORT INFORMATION
  Report Type: 
  Country: None (occurrence: None)
  Receive Date: 20060109
  Receipt Date: 20060109
  Transmission Date: 20060701
  Serious: Yes (Other)
  Sender: FDA-Public Use
  Company Number: None

PATIENT
  Age: 61 Year
  Sex: Male
  Weight: 87.8617 kg

DRUGS (18)
  1. AMIODARONE HCL [Suspect]
     Indication: ATRIAL FIBRILLATION
     Dosage: 150 MG ONCE IV BOLUS
     Route: 040
     Dates: start: 20060102, end: 20060102
  2. ATROVENT 0.02% SOLUTION [Concomitant]
  3. FLOVENT HFA [Concomitant]
  4. GUAFENESIN [Concomitant]
  5. LANOXIN [Concomitant]
  6. PNEUMOVAX 23 [Concomitant]
  7. ROCEPHIN [Concomitant]
  8. SALINE NASAL SPRAY [Concomitant]
  9. SEREVENT [Concomitant]
  10. TEMAZEPAM [Concomitant]
  11. XOPENEX [Concomitant]
  12. ZETIA [Concomitant]
  13. ALPRAZOLAM [Concomitant]
  14. DILTIAZEM NS [Concomitant]
  15. PROPAFENONE HCL [Concomitant]
  16. SODIUM CHLORIDE [Concomitant]
  17. SOLU-MEDROL [Concomitant]
  18. ZITHROMAX [Concomitant]

REACTIONS (3)
  - FLUSHING [None]
  - INFUSION RELATED REACTION [None]
  - LOSS OF CONSCIOUSNESS [None]
